FAERS Safety Report 12967476 (Version 1)
Quarter: 2016Q4

REPORT INFORMATION
  Report Type: Spontaneous
  Country: US (occurrence: US)
  Receive Date: 20161123
  Receipt Date: 20161123
  Transmission Date: 20170207
  Serious: Yes (Hospitalization, Other)
  Sender: FDA-Public Use
  Company Number: US-SUN PHARMACEUTICAL INDUSTRIES LTD-2016US-128116

PATIENT
  Age: 68 Year
  Sex: Female

DRUGS (1)
  1. SULPHAMETHOXAZOLE/TRIMETHOPRIM [Suspect]
     Active Substance: SULFAMETHOXAZOLE\TRIMETHOPRIM
     Indication: DIVERTICULITIS
     Dosage: UNK
     Route: 065

REACTIONS (6)
  - Toxicity to various agents [Unknown]
  - Rash maculo-papular [Unknown]
  - Meningitis aseptic [Recovering/Resolving]
  - Neutropenia [Recovered/Resolved]
  - Cholestatic liver injury [Unknown]
  - Thrombocytopenia [Unknown]
